FAERS Safety Report 9439308 (Version 1)
Quarter: 2013Q3

REPORT INFORMATION
  Report Type: Spontaneous
  Country: US (occurrence: US)
  Receive Date: 20130804
  Receipt Date: 20130804
  Transmission Date: 20140515
  Serious: No
  Sender: FDA-Public Use
  Company Number: US-009507513-1307USA007260

PATIENT
  Sex: Female

DRUGS (3)
  1. SAPHRIS [Suspect]
     Dosage: 5 MG, QPM
     Route: 048
  2. SAPHRIS [Suspect]
     Dosage: 10 MG, QPM
     Route: 048
     Dates: start: 20111026
  3. TRAZODONE HYDROCHLORIDE [Concomitant]
     Indication: SLEEP DISORDER

REACTIONS (2)
  - Sedation [Unknown]
  - Product taste abnormal [Unknown]
